FAERS Safety Report 7129453-5 (Version None)
Quarter: 2010Q4

REPORT INFORMATION
  Report Type: 
  Country: None (occurrence: None)
  Receive Date: 20101116
  Receipt Date: 20101102
  Transmission Date: 20110411
  Serious: Yes (Hospitalization)
  Sender: FDA-Public Use
  Company Number: 020538

PATIENT
  Sex: Male

DRUGS (3)
  1. VIMPAT [Suspect]
     Indication: EPILEPSY
     Dosage: 150 MG BID ORAL
     Route: 048
     Dates: start: 20100301
  2. LAMOTRIGINE [Concomitant]
  3. AMLOBETA [Concomitant]

REACTIONS (3)
  - APHASIA [None]
  - IRRITABILITY [None]
  - STATUS EPILEPTICUS [None]
